FAERS Safety Report 9838355 (Version 1)
Quarter: 2014Q1

REPORT INFORMATION
  Report Type: Spontaneous
  Country: DE (occurrence: DE)
  Receive Date: 20140123
  Receipt Date: 20140123
  Transmission Date: 20141002
  Serious: Yes (Death, Life-Threatening)
  Sender: FDA-Public Use
  Company Number: DE-ROXANE LABORATORIES, INC.-2014-RO-00075RO

PATIENT
  Age: 11 Year
  Sex: Male

DRUGS (6)
  1. CYCLOPHOSPHAMIDE TABLETS USP [Suspect]
     Indication: T-CELL TYPE ACUTE LEUKAEMIA
  2. ETOPOSIDE [Suspect]
     Indication: T-CELL TYPE ACUTE LEUKAEMIA
  3. NELARABINE [Suspect]
     Indication: T-CELL TYPE ACUTE LEUKAEMIA
  4. CYTARABINE [Suspect]
     Indication: T-CELL TYPE ACUTE LEUKAEMIA
     Route: 037
  5. METHOTREXATE [Suspect]
     Indication: T-CELL TYPE ACUTE LEUKAEMIA
     Route: 037
  6. PREDNISOLONE [Suspect]
     Indication: T-CELL TYPE ACUTE LEUKAEMIA
     Route: 037

REACTIONS (5)
  - Blast cell crisis [Fatal]
  - Central nervous system necrosis [Not Recovered/Not Resolved]
  - Neurotoxicity [Not Recovered/Not Resolved]
  - Aspiration [Unknown]
  - Cardio-respiratory arrest [Unknown]
